FAERS Safety Report 8777902 (Version 1)
Quarter: 2012Q4

REPORT INFORMATION
  Report Type: 
  Country: US (occurrence: US)
  Receive Date: 20120912
  Receipt Date: 20120912
  Transmission Date: 20130627
  Serious: No
  Sender: FDA-Public Use
  Company Number: US-ASTRAZENECA-2012SE65769

PATIENT
  Age: 34 Year
  Sex: Female

DRUGS (4)
  1. SEROQUEL XR [Suspect]
     Indication: BIPOLAR DISORDER
     Route: 048
  2. WELLBUTRIN SR [Concomitant]
  3. TRILEPTAL [Concomitant]
  4. KLONOPIN [Concomitant]

REACTIONS (2)
  - Exposure during pregnancy [Unknown]
  - Blood glucose increased [Recovered/Resolved]
